FAERS Safety Report 18143533 (Version 2)
Quarter: 2020Q3

REPORT INFORMATION
  Report Type: Spontaneous
  Country: US (occurrence: US)
  Receive Date: 20200813
  Receipt Date: 20200828
  Transmission Date: 20201103
  Serious: Yes (Life-Threatening, Hospitalization)
  Sender: FDA-Public Use
  Company Number: US-TEVA-2020-US-1812664

PATIENT
  Age: 43 Year
  Sex: Male

DRUGS (10)
  1. VALPROIC?ACID [Suspect]
     Active Substance: VALPROIC ACID
     Indication: EPILEPSY
     Dosage: 1500 MILLIGRAM DAILY;
     Route: 065
  2. VALPROIC ACID. [Suspect]
     Active Substance: VALPROIC ACID
     Indication: EPILEPSY
     Route: 042
  3. LEVETIRACETAM. [Concomitant]
     Active Substance: LEVETIRACETAM
     Indication: EPILEPSY
     Route: 065
  4. VALPROIC?ACID [Interacting]
     Active Substance: VALPROIC ACID
     Dosage: 2000 MILLIGRAM DAILY;
     Route: 065
  5. ZONISAMIDE. [Interacting]
     Active Substance: ZONISAMIDE
     Route: 065
  6. ZONISAMIDE. [Interacting]
     Active Substance: ZONISAMIDE
     Indication: EPILEPSY
     Route: 065
  7. LEVETIRACETAM. [Concomitant]
     Active Substance: LEVETIRACETAM
     Indication: EPILEPSY
     Dosage: 4000 MILLIGRAM DAILY;
     Route: 065
  8. LORAZEPAM. [Concomitant]
     Active Substance: LORAZEPAM
     Indication: STATUS EPILEPTICUS
     Route: 042
  9. ZONISAMIDE. [Interacting]
     Active Substance: ZONISAMIDE
     Route: 065
  10. ZONISAMIDE. [Interacting]
     Active Substance: ZONISAMIDE
     Route: 065

REACTIONS (8)
  - Metabolic acidosis [Recovering/Resolving]
  - Drug interaction [Recovering/Resolving]
  - Cytotoxic oedema [Recovering/Resolving]
  - Weight increased [Unknown]
  - Pneumonia [Recovering/Resolving]
  - Aminoaciduria [Recovering/Resolving]
  - Hyperammonaemic encephalopathy [Recovering/Resolving]
  - Respiratory distress [Recovering/Resolving]
